FAERS Safety Report 9313124 (Version 2)
Quarter: 2013Q2

REPORT INFORMATION
  Report Type: Report from Study
  Country: CL (occurrence: CL)
  Receive Date: 20130528
  Receipt Date: 20130603
  Transmission Date: 20140414
  Serious: Yes (Other)
  Sender: FDA-Public Use
  Company Number: PHHY2013CL052743

PATIENT
  Age: 87 Year
  Sex: Female

DRUGS (2)
  1. TAREG D [Suspect]
     Indication: BLOOD PRESSURE ABNORMAL
     Dosage: UNK (320/12.5MG), QD
     Route: 048
  2. DAGOTIL [Concomitant]
     Dosage: UNK UKN, UNK

REACTIONS (1)
  - Senile dementia [Not Recovered/Not Resolved]
